FAERS Safety Report 5478972-6 (Version None)
Quarter: 2007Q4

REPORT INFORMATION
  Report Type: 
  Country: None (occurrence: None)
  Receive Date: 20071006
  Receipt Date: 20070927
  Transmission Date: 20080405
  Serious: Yes (Hospitalization)
  Sender: FDA-Public Use
  Company Number: JP-PFIZER INC-2007076425

PATIENT
  Age: 21 Year
  Sex: Female

DRUGS (4)
  1. ZOLOFT [Suspect]
     Indication: DEPRESSION
     Dosage: TEXT:25MG-FREQ:DAILY
     Route: 048
  2. ALL OTHER THERAPEUTIC PRODUCTS [Suspect]
  3. MEILAX [Concomitant]
     Route: 048
  4. BROTIZOLAM [Concomitant]
     Route: 048

REACTIONS (2)
  - DRUG TOXICITY [None]
  - OVERDOSE [None]
